FAERS Safety Report 5931495-X (Version None)
Quarter: 2008Q4

REPORT INFORMATION
  Report Type: 
  Country: None (occurrence: None)
  Receive Date: 20081027
  Receipt Date: 20081017
  Transmission Date: 20090506
  Serious: Yes (Death)
  Sender: FDA-Public Use
  Company Number: A0715879A

PATIENT
  Age: 63 Year
  Sex: Male
  Weight: 101.8 kg

DRUGS (6)
  1. AVANDIA [Suspect]
     Indication: DIABETES MELLITUS
     Dosage: 8MG PER DAY
     Route: 048
     Dates: end: 20070520
  2. METFORMIN HYDROCHLORIDE [Concomitant]
     Dates: end: 20070501
  3. GLIPIZIDE [Concomitant]
  4. LIPITOR [Concomitant]
  5. ACCUPRIL [Concomitant]
  6. TRIAMTERENE [Concomitant]

REACTIONS (2)
  - ARTERIOSCLEROSIS [None]
  - SUDDEN DEATH [None]
